FAERS Safety Report 10874192 (Version 1)
Quarter: 2015Q1

REPORT INFORMATION
  Report Type: Spontaneous
  Country: US (occurrence: None)
  Receive Date: 20150223
  Receipt Date: 20150223
  Transmission Date: 20150721
  Serious: Yes (Hospitalization)
  Sender: FDA-Public Use
  Company Number: None

PATIENT
  Age: 74 Year
  Sex: Male
  Weight: 100 kg

DRUGS (1)
  1. LISINOPRIL. [Suspect]
     Active Substance: LISINOPRIL
     Indication: HYPERTENSION
     Route: 048
     Dates: start: 20140618, end: 20141214

REACTIONS (7)
  - Angioedema [None]
  - Nausea [None]
  - Dysphonia [None]
  - Odynophagia [None]
  - Vomiting [None]
  - Swollen tongue [None]
  - Ulcer [None]

NARRATIVE: CASE EVENT DATE: 20141213
